FAERS Safety Report 20132591 (Version 3)
Quarter: 2022Q1

REPORT INFORMATION
  Report Type: Report from Study
  Country: EG (occurrence: EG)
  Receive Date: 20211130
  Receipt Date: 20220119
  Transmission Date: 20220423
  Serious: Yes (Other)
  Sender: FDA-Public Use
  Company Number: EG-NOVARTISPH-NVSC2021EG269672

PATIENT
  Age: 61 Year
  Sex: Female

DRUGS (17)
  1. COSENTYX [Suspect]
     Active Substance: SECUKINUMAB
     Indication: Psoriatic arthropathy
     Dosage: 150 MG (STARTED FROM END OF 2017- BEGINNING OF 2018)
     Route: 065
     Dates: start: 2017
  2. COSENTYX [Suspect]
     Active Substance: SECUKINUMAB
     Dosage: 150 MG, QMO
     Route: 065
     Dates: start: 2020
  3. COSENTYX [Suspect]
     Active Substance: SECUKINUMAB
     Dosage: 150 MG, Q5W
     Route: 065
  4. CORTISONE [Suspect]
     Active Substance: CORTISONE
     Indication: Product used for unknown indication
     Dosage: UNK
     Route: 065
  5. BISOPROLOL FUMARATE [Concomitant]
     Active Substance: BISOPROLOL FUMARATE
     Indication: Hypertension
     Dosage: 1 DF QD (STARTED 21 YEARS AGO)
     Route: 048
  6. ATORVASTATIN CALCIUM [Concomitant]
     Active Substance: ATORVASTATIN CALCIUM
     Indication: Hypertension
     Dosage: 1 DF, QD (START: UNKNOWN BY THE REPORTER, STOPPED 3 MONTHS AGO)
     Route: 048
  7. SOLUPRED [Concomitant]
     Indication: Psoriatic arthropathy
     Dosage: 1 DF, QD (3 YEARS AGO)
     Route: 048
  8. SOLUPRED [Concomitant]
     Indication: Psoriatic arthropathy
     Dosage: 1 DF, QD (3 YEARS AGO)
     Route: 048
  9. VILDAGLIPTIN [Concomitant]
     Active Substance: VILDAGLIPTIN
     Indication: Diabetes mellitus
     Dosage: 1DF QD (START: 7 YEARS AGO)
     Route: 048
  10. VILDAGLIPTIN [Concomitant]
     Active Substance: VILDAGLIPTIN
     Dosage: 2 DF, QD (6 OR 7 MONTHS AGO)
     Route: 048
  11. GLUCOPHAGE [Concomitant]
     Active Substance: METFORMIN HYDROCHLORIDE
     Indication: Diabetes mellitus
     Dosage: 1 DF QD (STOPPED 3 YEARS AGO DUE TO STOMACH PROBLEMS)
     Route: 048
     Dates: start: 2015
  12. NEXIUM [Concomitant]
     Active Substance: ESOMEPRAZOLE MAGNESIUM
     Indication: Gastritis
     Dosage: 1 DF QD (START: 20-25 YEARS AGO, IN CASE OF SEVERE GASTRITIS^VOMITING ,PAIN AND SEVERE INFLAMMATION
     Route: 048
  13. CONTROLOC [Concomitant]
     Active Substance: PANTOPRAZOLE SODIUM
     Indication: Gastritis
     Dosage: 1 DF QD(START: 25-30 YEARS AGO)
     Route: 048
  14. VITAMIN D3 [Concomitant]
     Active Substance: CHOLECALCIFEROL
     Indication: Vitamin supplementation
     Dosage: 1 DF QD(START: 10 YEARS AGO)
     Route: 048
  15. BENFOTIAMINE\CYANOCOBALAMIN\PYRIDOXINE HYDROCHLORIDE [Concomitant]
     Active Substance: BENFOTIAMINE\CYANOCOBALAMIN\PYRIDOXINE HYDROCHLORIDE
     Indication: Supplementation therapy
     Dosage: 2 DF QD (START: 5 YEARS AGO)
     Route: 048
  16. MINERALS\VITAMINS [Concomitant]
     Active Substance: MINERALS\VITAMINS
     Indication: Supplementation therapy
     Dosage: 2 DF QD (START: 5 YEARS AGO)
     Route: 048
  17. PANADOL [Concomitant]
     Active Substance: ACETAMINOPHEN
     Indication: Analgesic therapy
     Dosage: 2 DF, BID (ADMINISTERED ONLY IF NEEDED)
     Route: 048

REACTIONS (14)
  - Condition aggravated [Not Recovered/Not Resolved]
  - Arthralgia [Not Recovered/Not Resolved]
  - Musculoskeletal stiffness [Not Recovered/Not Resolved]
  - Movement disorder [Not Recovered/Not Resolved]
  - Coronavirus infection [Recovered/Resolved]
  - COVID-19 pneumonia [Recovered/Resolved]
  - Product dose omission issue [Not Recovered/Not Resolved]
  - Burning sensation [Recovered/Resolved]
  - Chromaturia [Recovered/Resolved]
  - Blood creatinine increased [Unknown]
  - Blood glucose increased [Unknown]
  - Dysuria [Recovered/Resolved]
  - Bone pain [Not Recovered/Not Resolved]
  - Inappropriate schedule of product administration [Unknown]

NARRATIVE: CASE EVENT DATE: 20210301
